FAERS Safety Report 8447051-8 (Version None)
Quarter: 2012Q2

REPORT INFORMATION
  Report Type: 
  Country: None (occurrence: None)
  Receive Date: 20120619
  Receipt Date: 20120613
  Transmission Date: 20120825
  Serious: Yes (Other)
  Sender: FDA-Public Use
  Company Number: PHHY2012JP051368

PATIENT
  Age: 79 Year
  Sex: Male

DRUGS (6)
  1. TEGRETOL [Suspect]
     Indication: EPILEPSY
     Dosage: 100 MG, UNK
     Route: 048
  2. WARFARIN SODIUM [Suspect]
     Dosage: 1 MG, UNK
     Route: 048
  3. LEVOTHYROXINE SODIUM [Suspect]
     Dosage: 50 UG, UNK
  4. CORTRIL [Suspect]
     Dosage: 10 MG, UNK
     Route: 048
  5. MAGMITT [Concomitant]
     Dosage: 330 MG, UNK
     Route: 048
  6. ARICEPT ODT [Concomitant]
     Dosage: 5 MG, UNK
     Route: 048

REACTIONS (1)
  - PLATELET COUNT DECREASED [None]
